FAERS Safety Report 20115335 (Version 2)
Quarter: 2021Q4

REPORT INFORMATION
  Report Type: Spontaneous
  Country: CA (occurrence: CA)
  Receive Date: 20211125
  Receipt Date: 20211209
  Transmission Date: 20220303
  Serious: Yes (Other)
  Sender: FDA-Public Use
  Company Number: CA-SUN PHARMACEUTICAL INDUSTRIES LTD-2021R1-318591

PATIENT
  Age: 59 Year
  Sex: Female

DRUGS (2)
  1. DOXYCYCLINE [Suspect]
     Active Substance: DOXYCYCLINE
     Indication: Haemophagocytic lymphohistiocytosis
     Dosage: 100 MILLIGRAM, DAILY
     Route: 065
  2. METRONIDAZOLE [Suspect]
     Active Substance: METRONIDAZOLE
     Indication: Haemophagocytic lymphohistiocytosis
     Dosage: UNK/ 1 PERCENT CREAM
     Route: 065

REACTIONS (1)
  - Therapy partial responder [Unknown]
